FAERS Safety Report 6204350-8 (Version None)
Quarter: 2009Q2

REPORT INFORMATION
  Report Type: 
  Country: None (occurrence: None)
  Receive Date: 20090521
  Receipt Date: 20090508
  Transmission Date: 20091009
  Serious: Yes (Other)
  Sender: FDA-Public Use
  Company Number: 2009SP009951

PATIENT
  Age: 35 Year
  Sex: Female

DRUGS (1)
  1. DESLORATADINE AND PSEUDOEPHEDRINE SULFATE [Suspect]
     Indication: RHINITIS
     Dosage: 5 MG; QD; PO
     Route: 048

REACTIONS (4)
  - ARRHYTHMIA [None]
  - HYPERTENSION [None]
  - INSOMNIA [None]
  - TACHYCARDIA [None]
